FAERS Safety Report 6190987-1 (Version None)
Quarter: 2009Q2

REPORT INFORMATION
  Report Type: 
  Country: None (occurrence: None)
  Receive Date: 20090513
  Receipt Date: 20090430
  Transmission Date: 20091009
  Serious: Yes (Hospitalization, Other)
  Sender: FDA-Public Use
  Company Number: ADE# 09-197DPR

PATIENT
  Age: 92 Year
  Sex: Female

DRUGS (6)
  1. DIGOXIN [Suspect]
     Indication: ATRIAL FIBRILLATION
     Dosage: ONCE A DAY
  2. THYROID TAB [Concomitant]
  3. DITROPAN [Concomitant]
  4. ASPIRIN [Concomitant]
  5. K-DUR [Concomitant]
  6. TOPROL-XL [Concomitant]

REACTIONS (13)
  - ABDOMINAL PAIN [None]
  - BALANCE DISORDER [None]
  - BRADYCARDIA [None]
  - CEREBROVASCULAR ACCIDENT [None]
  - CHEST PAIN [None]
  - CONSTIPATION [None]
  - DIARRHOEA [None]
  - DIZZINESS [None]
  - DRUG INEFFECTIVE [None]
  - HYPOTENSION [None]
  - NAUSEA [None]
  - URINARY TRACT INFECTION [None]
  - VOMITING [None]
